FAERS Safety Report 15484852 (Version 1)
Quarter: 2018Q4

REPORT INFORMATION
  Report Type: Spontaneous
  Country: US (occurrence: US)
  Receive Date: 20181010
  Receipt Date: 20181010
  Transmission Date: 20190205
  Serious: No
  Sender: FDA-Public Use
  Company Number: US-ROCHE-1993796

PATIENT
  Sex: Male
  Weight: 93.98 kg

DRUGS (10)
  1. MONTELUKAST SODIUM. [Concomitant]
     Active Substance: MONTELUKAST SODIUM
  2. DOXYCYCLINE HYCLATE. [Concomitant]
     Active Substance: DOXYCYCLINE HYCLATE
  3. CRESTOR [Concomitant]
     Active Substance: ROSUVASTATIN CALCIUM
  4. MECLIZINE HCL [Concomitant]
     Active Substance: MECLIZINE HYDROCHLORIDE
  5. ZELBORAF [Suspect]
     Active Substance: VEMURAFENIB
     Indication: CHRONIC LYMPHOCYTIC LEUKAEMIA
     Dosage: 4 TABLETS BID
     Route: 048
     Dates: start: 201305
  6. PREDNISONE. [Concomitant]
     Active Substance: PREDNISONE
  7. TRAMADOL HCL [Concomitant]
     Active Substance: TRAMADOL HYDROCHLORIDE
  8. ZELBORAF [Suspect]
     Active Substance: VEMURAFENIB
     Indication: MALIGNANT MELANOMA
     Dosage: TAKE 4 TABLETS BID
     Route: 048
  9. CLARITIN [Concomitant]
     Active Substance: LORATADINE
     Route: 065
  10. LEVOFLOXACIN. [Concomitant]
     Active Substance: LEVOFLOXACIN

REACTIONS (3)
  - Intentional dose omission [Unknown]
  - Arthritis [Not Recovered/Not Resolved]
  - Bone pain [Not Recovered/Not Resolved]
